FAERS Safety Report 22658374 (Version 1)
Quarter: 2023Q2

REPORT INFORMATION
  Report Type: Spontaneous
  Country: US (occurrence: US)
  Receive Date: 20230630
  Receipt Date: 20230630
  Transmission Date: 20230722
  Serious: No
  Sender: FDA-Public Use
  Company Number: ENDG22-04787

PATIENT
  Sex: Female

DRUGS (1)
  1. CALCITONIN SALMON [Suspect]
     Active Substance: CALCITONIN SALMON
     Indication: Osteoporosis
     Dosage: 1 DF, DAILY (ONE SPRAY ONE NOSTRIL)
     Route: 045
     Dates: start: 202207

REACTIONS (3)
  - Rash pruritic [Recovering/Resolving]
  - Product substitution issue [Unknown]
  - Product formulation issue [Unknown]

NARRATIVE: CASE EVENT DATE: 20220701
